FAERS Safety Report 5863458-7 (Version None)
Quarter: 2008Q3

REPORT INFORMATION
  Report Type: 
  Country: None (occurrence: None)
  Receive Date: 20080828
  Receipt Date: 20080815
  Transmission Date: 20090109
  Serious: Yes (Hospitalization, Disabling)
  Sender: FDA-Public Use
  Company Number: US-SANOFI-SYNTHELABO-A03200803265

PATIENT
  Sex: Female

DRUGS (4)
  1. AMBIEN [Suspect]
     Indication: INSOMNIA
     Dosage: 5 MG AT BEDTIME AS NEEDED
     Route: 048
     Dates: start: 20050101
  2. AMBIEN [Suspect]
     Dosage: HALVED THE PILL, TAKING 5 MG (HALF OF 10 MG TABLET)
     Route: 048
  3. LORTAB [Concomitant]
     Indication: DRUG USE FOR UNKNOWN INDICATION
     Dosage: TAKE AS NEEDED FOR PAIN
     Route: 048
  4. VITAMIN B-12 [Concomitant]
     Indication: DRUG USE FOR UNKNOWN INDICATION
     Dosage: UNK
     Route: 065

REACTIONS (24)
  - ACETABULUM FRACTURE [None]
  - ACTIVITIES OF DAILY LIVING IMPAIRED [None]
  - ARTHRITIS [None]
  - ATELECTASIS [None]
  - CARDIOMEGALY [None]
  - CONFUSIONAL STATE [None]
  - FALL [None]
  - FRACTURE DISPLACEMENT [None]
  - HAEMORRHAGIC ANAEMIA [None]
  - INTENTIONAL DRUG MISUSE [None]
  - INTERNAL INJURY [None]
  - JOINT EFFUSION [None]
  - LUMBAR VERTEBRAL FRACTURE [None]
  - LUNG INFECTION [None]
  - LUNG INFILTRATION [None]
  - LUNG INJURY [None]
  - PLEURAL EFFUSION [None]
  - PNEUMOTHORAX [None]
  - PUBIC RAMI FRACTURE [None]
  - PULMONARY VASCULAR DISORDER [None]
  - RETROPERITONEAL HAEMORRHAGE [None]
  - RIB FRACTURE [None]
  - SOMNAMBULISM [None]
  - WRONG TECHNIQUE IN DRUG USAGE PROCESS [None]
